FAERS Safety Report 14554486 (Version 1)
Quarter: 2018Q1

REPORT INFORMATION
  Report Type: Spontaneous
  Country: US (occurrence: US)
  Receive Date: 20180220
  Receipt Date: 20180220
  Transmission Date: 20180509
  Serious: Yes (Death)
  Sender: FDA-Public Use
  Company Number: PHHY2018US012021

PATIENT
  Age: 85 Year
  Sex: Female

DRUGS (3)
  1. CEFTAROLINE FOSAMIL ACETATE [Suspect]
     Active Substance: CEFTAROLINE FOSAMIL
     Indication: ENDOCARDITIS
     Dosage: DAY 7- DAY 15
     Route: 065
  2. CUBICIN [Suspect]
     Active Substance: DAPTOMYCIN
     Indication: ENDOCARDITIS
     Dosage: DAY 7 - DAY 13
     Route: 065
  3. VANCOMYCIN [Suspect]
     Active Substance: VANCOMYCIN
     Indication: ENDOCARDITIS
     Dosage: DAY 1-7
     Route: 065

REACTIONS (2)
  - Endocarditis [Fatal]
  - Drug ineffective [Fatal]
